FAERS Safety Report 8341325-7 (Version None)
Quarter: 2012Q2

REPORT INFORMATION
  Report Type: 
  Country: None (occurrence: None)
  Receive Date: 20120507
  Receipt Date: 20120423
  Transmission Date: 20120825
  Serious: Yes (Hospitalization, Other)
  Sender: FDA-Public Use
  Company Number: US-MYLANLABS-2009AC000140

PATIENT
  Age: 55 Year
  Sex: Female
  Weight: 73.94 kg

DRUGS (19)
  1. POTASSIUM CHLORIDE [Concomitant]
  2. ALDACTONE [Concomitant]
  3. JANUVIA [Concomitant]
  4. AMARYL [Concomitant]
  5. HYDROCHLOROTHIAZIDE [Concomitant]
  6. METFORMIN HCL [Concomitant]
  7. SPIRONOLACTONE [Concomitant]
  8. FUROSEMIDE [Concomitant]
  9. DIGOXIN [Suspect]
     Route: 048
     Dates: start: 20080223, end: 20080620
  10. KIONEX [Concomitant]
  11. KLOR-CON [Concomitant]
  12. COREG [Concomitant]
  13. NOVOLIN 70/30 [Concomitant]
  14. ATACAND [Concomitant]
  15. CARVEDILOL [Concomitant]
  16. LISINOPRIL [Concomitant]
  17. AZITHROMYCIN [Concomitant]
  18. GLUCAGON [Concomitant]
  19. NAPROXEN [Concomitant]

REACTIONS (27)
  - DYSPNOEA [None]
  - CARDIOMYOPATHY [None]
  - OEDEMA PERIPHERAL [None]
  - TOXICITY TO VARIOUS AGENTS [None]
  - DYSPNOEA EXERTIONAL [None]
  - RENAL FAILURE ACUTE [None]
  - TACHYCARDIA [None]
  - HYPOVOLAEMIA [None]
  - DIABETES MELLITUS [None]
  - PULMONARY CONGESTION [None]
  - SINUS TACHYCARDIA [None]
  - CARDIAC FAILURE CONGESTIVE [None]
  - CARDIAC MURMUR [None]
  - ILL-DEFINED DISORDER [None]
  - RENAL FAILURE [None]
  - NAUSEA [None]
  - HYPERKALAEMIA [None]
  - BRADYCARDIA [None]
  - INJURY [None]
  - ECONOMIC PROBLEM [None]
  - METABOLIC ACIDOSIS [None]
  - PLEURAL EFFUSION [None]
  - ASTHENIA [None]
  - CARDIOMEGALY [None]
  - LUNG INFILTRATION [None]
  - VOMITING [None]
  - WHEEZING [None]
